FAERS Safety Report 23787233 (Version 2)
Quarter: 2024Q2

REPORT INFORMATION
  Report Type: Spontaneous
  Country: US (occurrence: US)
  Receive Date: 20240426
  Receipt Date: 20240514
  Transmission Date: 20240716
  Serious: No
  Sender: FDA-Public Use
  Company Number: US-LEO Pharma-369762

PATIENT
  Age: 64 Year
  Sex: Male

DRUGS (1)
  1. ADBRY [Suspect]
     Active Substance: TRALOKINUMAB-LDRM
     Indication: Dermatitis atopic
     Route: 058
     Dates: start: 20240219

REACTIONS (5)
  - Disease recurrence [Unknown]
  - Dry eye [Recovered/Resolved]
  - Hordeolum [Recovered/Resolved]
  - Illness [Unknown]
  - Eye disorder [Recovered/Resolved]
